FAERS Safety Report 5171467-9 (Version None)
Quarter: 2006Q4

REPORT INFORMATION
  Report Type: 
  Country: None (occurrence: None)
  Receive Date: 20061213
  Receipt Date: 20060615
  Transmission Date: 20070319
  Serious: Yes (Hospitalization)
  Sender: FDA-Public Use
  Company Number: US-AMGEN-STX183300

PATIENT
  Sex: Female
  Weight: 70.8 kg

DRUGS (7)
  1. ENBREL [Suspect]
     Indication: RHEUMATOID ARTHRITIS
     Route: 058
     Dates: start: 20050501, end: 20060401
  2. PREDNISONE TAB [Suspect]
     Indication: RHEUMATOID ARTHRITIS
     Route: 048
  3. METHOTREXATE [Concomitant]
     Indication: RHEUMATOID ARTHRITIS
     Route: 048
     Dates: start: 20050401
  4. FOLIC ACID [Concomitant]
     Route: 048
     Dates: start: 20050401
  5. CYPROHEPTADINE HCL [Concomitant]
     Route: 048
     Dates: start: 20050401
  6. CALCIUM [Concomitant]
     Route: 048
     Dates: start: 20050401
  7. VITAMIN CAP [Concomitant]
     Route: 048
     Dates: start: 20050401

REACTIONS (1)
  - CONVULSION [None]
